FAERS Safety Report 8390034-7 (Version None)
Quarter: 2012Q2

REPORT INFORMATION
  Report Type: 
  Country: None (occurrence: None)
  Receive Date: 20120529
  Receipt Date: 20120516
  Transmission Date: 20120825
  Serious: Yes (Other)
  Sender: FDA-Public Use
  Company Number: GB-BAYER-2012-048972

PATIENT
  Age: 57 Year
  Sex: Female

DRUGS (3)
  1. FLUCONAZOLE [Suspect]
     Indication: VULVOVAGINAL CANDIDIASIS
     Dosage: UNK
     Dates: start: 20120423
  2. CLOTRIMAZOLE [Suspect]
     Indication: VULVOVAGINAL CANDIDIASIS
     Dosage: UNK
     Dates: start: 20120423
  3. CLOTRIMAZOLE [Suspect]
     Indication: VULVOVAGINAL CANDIDIASIS
     Dosage: 500 MG, UNK
     Dates: start: 20120423

REACTIONS (2)
  - VAGINAL HAEMORRHAGE [None]
  - VULVOVAGINAL BURNING SENSATION [None]
